FAERS Safety Report 6090628-8 (Version None)
Quarter: 2009Q1

REPORT INFORMATION
  Report Type: 
  Country: None (occurrence: None)
  Receive Date: 20090224
  Receipt Date: 20090121
  Transmission Date: 20090719
  Serious: No
  Sender: FDA-Public Use
  Company Number: US-ABBOTT-09P-163-0499252-00

PATIENT
  Sex: Female
  Weight: 70.37 kg

DRUGS (3)
  1. SIMCOR [Suspect]
     Indication: BLOOD CHOLESTEROL INCREASED
     Dates: start: 20090101, end: 20090120
  2. SIMCOR [Suspect]
     Indication: BLOOD TRIGLYCERIDES INCREASED
  3. TOPROL-XL [Concomitant]
     Indication: ARRHYTHMIA
     Dates: start: 20040101

REACTIONS (3)
  - EYE IRRITATION [None]
  - HOT FLUSH [None]
  - PRURITUS [None]
